FAERS Safety Report 9795872 (Version 2)
Quarter: 2014Q1

REPORT INFORMATION
  Report Type: Spontaneous
  Country: US (occurrence: US)
  Receive Date: 20140103
  Receipt Date: 20140225
  Transmission Date: 20141002
  Serious: No
  Sender: FDA-Public Use
  Company Number: US-TEVA-452896USA

PATIENT
  Age: 28 Year
  Sex: Female
  Weight: 90.8 kg

DRUGS (3)
  1. PARAGARD 380A [Suspect]
     Indication: CONTRACEPTION
     Dates: start: 20131216, end: 20131220
  2. PARAGARD 380A [Suspect]
     Dates: start: 20131220
  3. PRENATAL VITAMINS [Concomitant]
     Indication: BREAST FEEDING

REACTIONS (2)
  - Vaginal haemorrhage [Unknown]
  - Device expulsion [Recovered/Resolved]
